FAERS Safety Report 4298450-X (Version None)
Quarter: 2004Q1

REPORT INFORMATION
  Report Type: 
  Country: None (occurrence: None)
  Receive Date: 20040218
  Receipt Date: 20030805
  Transmission Date: 20041129
  Serious: No
  Sender: FDA-Public Use
  Company Number: US-BRISTOL-MYERS SQUIBB COMPANY-12347696

PATIENT
  Age: 35 Year
  Sex: Female

DRUGS (4)
  1. STADOL [Suspect]
     Indication: MIGRAINE
     Dosage: 10MG EVERY 4 HOURS, AS NEEDED
     Route: 045
     Dates: start: 20030710
  2. MAXALT [Concomitant]
  3. DECADRON [Concomitant]
  4. SARAFEM [Concomitant]

REACTIONS (2)
  - DRUG INEFFECTIVE [None]
  - MEDICATION ERROR [None]
